FAERS Safety Report 8197608-7 (Version None)
Quarter: 2012Q1

REPORT INFORMATION
  Report Type: 
  Country: None (occurrence: None)
  Receive Date: 20120309
  Receipt Date: 20120227
  Transmission Date: 20120608
  Serious: Yes (Hospitalization, Other)
  Sender: FDA-Public Use
  Company Number: US-SANOFI-AVENTIS-2012SA002883

PATIENT
  Age: 65 Year
  Sex: Male
  Weight: 97.52 kg

DRUGS (7)
  1. LANTUS [Suspect]
     Route: 058
     Dates: start: 20110601
  2. HUMALOG [Concomitant]
     Dates: start: 20000101
  3. ALL OTHER THERAPEUTIC PRODUCTS [Concomitant]
     Indication: HYPERTENSION
     Dates: start: 20000101
  4. LANTUS [Suspect]
     Dosage: DOSE:50 UNIT(S)
     Route: 058
     Dates: start: 20000101
  5. HUMULIN 70/30 [Concomitant]
  6. LANTUS [Suspect]
     Dosage: IN AM AND PM DOSE:37 UNIT(S)
     Route: 058
  7. SOLOSTAR [Suspect]
     Dates: start: 20110601

REACTIONS (6)
  - STAPHYLOCOCCAL INFECTION [None]
  - GLYCOSYLATED HAEMOGLOBIN INCREASED [None]
  - BLOOD GLUCOSE DECREASED [None]
  - METAMORPHOPSIA [None]
  - BLOOD GLUCOSE INCREASED [None]
  - CORONARY ARTERY DISEASE [None]
